FAERS Safety Report 11328805 (Version 1)
Quarter: 2015Q3

REPORT INFORMATION
  Report Type: Spontaneous
  Country: FR (occurrence: FR)
  Receive Date: 20150731
  Receipt Date: 20150731
  Transmission Date: 20151125
  Serious: Yes (Hospitalization)
  Sender: FDA-Public Use
  Company Number: FR-ASTRAZENECA-2015SE73344

PATIENT
  Age: 10084 Day
  Sex: Female

DRUGS (27)
  1. DECAN [Concomitant]
     Active Substance: ZINC GLUCONATE
     Dates: start: 20150527, end: 20150604
  2. PHOSPHONEUROS [Concomitant]
     Active Substance: CALCIUM PHOSPHATE, DIBASIC, ANHYDROUS\MAGNESIUM GLYCEROPHOSPHATE\PHOSPHORIC ACID\SODIUM PHOSPHATE, DIBASIC
     Dates: start: 20150603, end: 20150609
  3. KEPPRA [Suspect]
     Active Substance: LEVETIRACETAM
     Indication: EPILEPSY
     Route: 048
     Dates: start: 20150520, end: 20150612
  4. ATARAX [Suspect]
     Active Substance: HYDROXYZINE\HYDROXYZINE HYDROCHLORIDE
     Route: 048
     Dates: start: 20150523, end: 20150609
  5. CHLORATE DE POTASSIUM [Concomitant]
     Route: 042
     Dates: start: 20150527, end: 20150527
  6. INEXIUM [Suspect]
     Active Substance: ESOMEPRAZOLE
     Route: 048
     Dates: start: 20150526, end: 20150528
  7. LOVENOX [Suspect]
     Active Substance: ENOXAPARIN SODIUM
     Route: 065
     Dates: start: 20150523, end: 20150528
  8. HYDROXYZINE [Concomitant]
     Active Substance: HYDROXYZINE\HYDROXYZINE HYDROCHLORIDE
     Route: 042
     Dates: start: 20150524, end: 20150527
  9. L-THYROXINE [Concomitant]
     Active Substance: LEVOTHYROXINE
     Dates: start: 20150526, end: 20150602
  10. MORPHINE CHLORHYDRATE [Concomitant]
     Active Substance: MORPHINE HYDROCHLORIDE
     Route: 042
     Dates: start: 20150523, end: 20150524
  11. LARGATIL [Concomitant]
     Dates: start: 20150524
  12. VASELINE PURE [Concomitant]
     Active Substance: PETROLATUM
  13. RIVOTRIL [Concomitant]
     Active Substance: CLONAZEPAM
     Dates: start: 20150524, end: 20150609
  14. ZELITREX [Concomitant]
     Active Substance: VALACYCLOVIR HYDROCHLORIDE
     Dates: start: 20150523, end: 20150601
  15. DIFFU K [Concomitant]
     Active Substance: POTASSIUM CHLORIDE
     Dates: start: 20150526, end: 20150526
  16. HUMALOG [Concomitant]
     Active Substance: INSULIN LISPRO
  17. INEXIUM [Suspect]
     Active Substance: ESOMEPRAZOLE
     Route: 048
     Dates: start: 20150602, end: 20150608
  18. CEFTRIAXONE BASE [Concomitant]
     Active Substance: CEFTRIAXONE
     Dates: start: 20150521, end: 20150531
  19. PHOCYTAN [Concomitant]
     Active Substance: .ALPHA.-GLUCOSE-1-PHOSPHATE
     Route: 042
     Dates: start: 20150524, end: 20150528
  20. TAZOCILLINE [Concomitant]
     Active Substance: PIPERACILLIN SODIUM\TAZOBACTAM SODIUM
     Dates: start: 20150601, end: 20150602
  21. GLYCEROL\PARAFFIN [Concomitant]
     Active Substance: GLYCERIN\PARAFFIN
  22. LANTUS [Concomitant]
     Active Substance: INSULIN GLARGINE
  23. CERNEVIT [Concomitant]
     Active Substance: VITAMINS
     Dates: start: 20150527, end: 20150604
  24. EUPANTOL [Suspect]
     Active Substance: PANTOPRAZOLE SODIUM
     Route: 048
     Dates: start: 20150528, end: 20150602
  25. ACICLOVIR [Concomitant]
     Active Substance: ACYCLOVIR
     Route: 042
     Dates: start: 20150524, end: 20150530
  26. L-THYROXINE [Concomitant]
     Active Substance: LEVOTHYROXINE
  27. VITAMINE A [Concomitant]

REACTIONS (4)
  - Erythema [Recovered/Resolved]
  - Rash maculo-papular [Recovered/Resolved]
  - Pruritus [Recovered/Resolved]
  - Eosinophilia [Recovered/Resolved]

NARRATIVE: CASE EVENT DATE: 20150607
